FAERS Safety Report 8875941 (Version 1)
Quarter: 2012Q4

REPORT INFORMATION
  Report Type: Report from Study
  Country: GB (occurrence: GB)
  Receive Date: 20121023
  Receipt Date: 20121023
  Transmission Date: 20130627
  Serious: Yes (Other)
  Sender: FDA-Public Use
  Company Number: GB-GLAXOSMITHKLINE-B0839385A

PATIENT
  Age: 60 Year
  Sex: Female
  Weight: 82.1 kg

DRUGS (1)
  1. PAZOPANIB [Suspect]
     Indication: SARCOMA
     Route: 048
     Dates: start: 20120712

REACTIONS (2)
  - Lung disorder [Recovering/Resolving]
  - Haemoptysis [Recovering/Resolving]
